FAERS Safety Report 14698919 (Version 1)
Quarter: 2018Q1

REPORT INFORMATION
  Report Type: Spontaneous
  Country: GB (occurrence: GB)
  Receive Date: 20180330
  Receipt Date: 20180330
  Transmission Date: 20180509
  Serious: Yes (Other)
  Sender: FDA-Public Use
  Company Number: GB-AMGEN-GBRSP2018042630

PATIENT
  Age: 57 Year
  Sex: Female

DRUGS (1)
  1. ENBREL [Suspect]
     Active Substance: ETANERCEPT
     Indication: RHEUMATOID ARTHRITIS
     Dosage: 50 MG, WEEKLY
     Route: 058
     Dates: start: 20170717

REACTIONS (7)
  - Feeling of despair [Unknown]
  - Feeling abnormal [Unknown]
  - Self-injurious ideation [Unknown]
  - Pain [Unknown]
  - Diabetes mellitus [Unknown]
  - Fibromyalgia [Unknown]
  - Liver disorder [Unknown]
